FAERS Safety Report 5406971-9 (Version None)
Quarter: 2007Q3

REPORT INFORMATION
  Report Type: 
  Country: None (occurrence: None)
  Receive Date: 20070803
  Receipt Date: 20070803
  Transmission Date: 20080115
  Serious: No
  Sender: FDA-Public Use
  Company Number: None

PATIENT
  Age: 45 Year
  Sex: Male
  Weight: 90.7194 kg

DRUGS (3)
  1. WELLBUTRIN [Suspect]
     Indication: DEPRESSION
     Dosage: ONE TAB DAILY PO
     Route: 048
     Dates: start: 20060731, end: 20060815
  2. LOTREL [Concomitant]
  3. PERCOCOET [Concomitant]

REACTIONS (4)
  - AGITATION [None]
  - INSOMNIA [None]
  - RESTLESSNESS [None]
  - SUICIDAL BEHAVIOUR [None]
